FAERS Safety Report 7489824-4 (Version None)
Quarter: 2011Q2

REPORT INFORMATION
  Report Type: 
  Country: None (occurrence: None)
  Receive Date: 20110519
  Receipt Date: 20110510
  Transmission Date: 20111010
  Serious: No
  Sender: FDA-Public Use
  Company Number: US-BIOGENIDEC-2011BI018253

PATIENT
  Age: 82 Year
  Sex: Female

DRUGS (1)
  1. AVONEX [Suspect]
     Indication: MULTIPLE SCLEROSIS
     Route: 030
     Dates: end: 20110401

REACTIONS (4)
  - DYSSTASIA [None]
  - FALL [None]
  - PAIN IN EXTREMITY [None]
  - MUSCULAR WEAKNESS [None]
